FAERS Safety Report 13880172 (Version 1)
Quarter: 2017Q3

REPORT INFORMATION
  Report Type: Spontaneous
  Country: AE (occurrence: AE)
  Receive Date: 20170818
  Receipt Date: 20170818
  Transmission Date: 20171127
  Serious: Yes (Hospitalization, Other)
  Sender: FDA-Public Use
  Company Number: AE-SUN PHARMACEUTICAL INDUSTRIES LTD-2016R1-119404

PATIENT
  Age: 55 Year
  Sex: Male

DRUGS (3)
  1. LITHIUM. [Suspect]
     Active Substance: LITHIUM
     Indication: BIPOLAR DISORDER
     Dosage: 900 MG (TWO DIVIDED DOSES )
     Route: 048
  2. OLANZAPINE. [Concomitant]
     Active Substance: OLANZAPINE
     Indication: BIPOLAR DISORDER
     Dosage: 10 MG
     Route: 048
  3. CLONAZEPAM. [Concomitant]
     Active Substance: CLONAZEPAM
     Indication: BIPOLAR DISORDER
     Dosage: 2 MG
     Route: 048

REACTIONS (5)
  - Toxicity to various agents [Recovering/Resolving]
  - Drug ineffective [Recovering/Resolving]
  - Dysarthria [Unknown]
  - Cerebellar syndrome [Recovering/Resolving]
  - Respiratory tract infection [Recovering/Resolving]
